APPROVED DRUG PRODUCT: ACETIC ACID
Active Ingredient: ACETIC ACID, GLACIAL
Strength: 2%
Dosage Form/Route: SOLUTION/DROPS;OTIC
Application: A207280 | Product #001 | TE Code: AT
Applicant: RISING PHARMA HOLDINGS INC
Approved: Mar 9, 2018 | RLD: No | RS: No | Type: RX